FAERS Safety Report 9207668 (Version 5)
Quarter: 2013Q4

REPORT INFORMATION
  Report Type: Spontaneous
  Country: US (occurrence: US)
  Receive Date: 20130403
  Receipt Date: 20131104
  Transmission Date: 20140711
  Serious: Yes (Hospitalization, Disabling, Other)
  Sender: FDA-Public Use
  Company Number: US-009507513-1303USA014027

PATIENT
  Sex: Female
  Weight: 82.54 kg

DRUGS (5)
  1. FOSAMAX [Suspect]
     Indication: OSTEOPENIA
     Dosage: 10 MG, UNK
     Route: 048
     Dates: start: 199905, end: 200112
  2. FOSAMAX [Suspect]
     Indication: OSTEOPOROSIS
     Dosage: 70 MG, WEEKLY
     Route: 048
     Dates: start: 200112
  3. VITAMINS (UNSPECIFIED) [Concomitant]
     Dosage: ONE QD
     Route: 048
     Dates: start: 1998
  4. CALCIUM (UNSPECIFIED) (+) VITAMIN D (UNSPECIFIED) [Concomitant]
     Dosage: 800 MG, UNK
     Dates: start: 1998
  5. ASCORBIC ACID [Concomitant]
     Dosage: 400-500 MG DAILY
     Dates: start: 1998

REACTIONS (30)
  - Femur fracture [Recovering/Resolving]
  - Intramedullary rod insertion [Unknown]
  - Pulmonary embolism [Unknown]
  - Foot fracture [Unknown]
  - Low turnover osteopathy [Not Recovered/Not Resolved]
  - Joint injury [Unknown]
  - Hiatus hernia [Unknown]
  - Anxiety [Unknown]
  - Pain [Unknown]
  - Hypercholesterolaemia [Unknown]
  - Phlebitis [Unknown]
  - Fibula fracture [Recovering/Resolving]
  - Plantar fasciitis [Unknown]
  - Depression [Unknown]
  - Asthma [Unknown]
  - Plantar fasciitis [Unknown]
  - Foot fracture [Unknown]
  - Mitral valve prolapse [Unknown]
  - Insomnia [Unknown]
  - Tonsillectomy [Unknown]
  - Retinal operation [Unknown]
  - Iron deficiency anaemia [Unknown]
  - Meniscus injury [Unknown]
  - Hand fracture [Unknown]
  - Tendon injury [Unknown]
  - Meniscus injury [Unknown]
  - Osteoarthritis [Unknown]
  - Joint effusion [Unknown]
  - Synovial cyst [Unknown]
  - Gastrooesophageal reflux disease [Unknown]
